FAERS Safety Report 10360495 (Version 4)
Quarter: 2016Q3

REPORT INFORMATION
  Report Type: Spontaneous
  Country: US (occurrence: US)
  Receive Date: 20140804
  Receipt Date: 20160706
  Transmission Date: 20161109
  Serious: Yes (Other)
  Sender: FDA-Public Use
  Company Number: US-PFIZER INC-2014212538

PATIENT
  Age: 56 Year
  Sex: Female
  Weight: 47 kg

DRUGS (8)
  1. TEGRETOL [Concomitant]
     Active Substance: CARBAMAZEPINE
     Indication: SEIZURE
     Dosage: 200 MG, EVERY 4 HRS
     Route: 048
  2. DILANTIN [Suspect]
     Active Substance: PHENYTOIN
     Indication: SEIZURE
     Dosage: 100 MG, 3X/DAY (ONE CAPSULE IN MORNING, ONE IN AFTERNOON AND ONE IN NIGHT)
     Route: 048
     Dates: start: 19810629
  3. DILANTIN [Suspect]
     Active Substance: PHENYTOIN
     Dosage: 100 MG, 2X/DAY (ONE CAPSULE IN THE MORNING AND ONE IN NIGHT)
     Route: 048
  4. ASA [Concomitant]
     Active Substance: ASPIRIN
     Dosage: 81 MG, UNK
  5. MOGADON [Suspect]
     Active Substance: NITRAZEPAM
     Indication: CONVULSION PROPHYLAXIS
  6. TEGRETOL [Concomitant]
     Active Substance: CARBAMAZEPINE
     Dosage: 200 MG, 4X/DAY
     Route: 048
     Dates: start: 197906
  7. DILANTIN [Suspect]
     Active Substance: PHENYTOIN
     Indication: GENERALISED TONIC-CLONIC SEIZURE
     Dosage: 200MG CAPSULES ONE IN THE MORNING AND TWO AT NIGHT
     Route: 048
     Dates: start: 1979
  8. MOGADON [Suspect]
     Active Substance: NITRAZEPAM
     Indication: SEIZURE
     Dosage: 25 MG, DAILY (10MG IN THE MORNING, 5MG AT NOON AND 10MG AT NIGHT)
     Route: 048
     Dates: start: 1985

REACTIONS (3)
  - Drug dose omission [Unknown]
  - Seizure [Recovered/Resolved]
  - Condition aggravated [Recovered/Resolved]
